FAERS Safety Report 19115387 (Version 1)
Quarter: 2021Q2

REPORT INFORMATION
  Report Type: Spontaneous
  Country: AT (occurrence: AT)
  Receive Date: 20210409
  Receipt Date: 20210409
  Transmission Date: 20210717
  Serious: Yes (Other)
  Sender: FDA-Public Use
  Company Number: AT-ASTRAZENECA-2021A256431

PATIENT
  Age: 57 Year
  Sex: Male

DRUGS (18)
  1. TEMESTA [LORAZEPAM] [Suspect]
     Active Substance: LORAZEPAM
     Indication: ACUTE PSYCHOSIS
     Dosage: 5.0MG UNKNOWN
     Route: 065
     Dates: start: 20201102
  2. LAMOTRIGIN [Suspect]
     Active Substance: LAMOTRIGINE
     Route: 065
     Dates: start: 20201114
  3. RISPERDAL [Suspect]
     Active Substance: RISPERIDONE
     Indication: ACUTE PSYCHOSIS
     Dosage: 2.5MG UNKNOWN
     Route: 065
     Dates: start: 20201106, end: 20201106
  4. VENLAFAXINE [Suspect]
     Active Substance: VENLAFAXINE HYDROCHLORIDE
     Dosage: 75.0MG UNKNOWN
     Route: 065
     Dates: start: 20201108, end: 20201112
  5. TEMESTA [LORAZEPAM] [Suspect]
     Active Substance: LORAZEPAM
     Dosage: 2.5MG UNKNOWN
     Route: 065
     Dates: start: 20201112
  6. VENLAFAXINE [Suspect]
     Active Substance: VENLAFAXINE HYDROCHLORIDE
     Indication: ACUTE PSYCHOSIS
     Route: 065
     Dates: start: 20201106, end: 20201107
  7. LAMOTRIGIN [Suspect]
     Active Substance: LAMOTRIGINE
     Dosage: 100.0MG UNKNOWN
     Route: 065
     Dates: start: 20201125
  8. LAMOTRIGIN [Suspect]
     Active Substance: LAMOTRIGINE
     Dosage: 150.0MG UNKNOWN
     Route: 065
     Dates: start: 20201210
  9. TEMESTA [LORAZEPAM] [Suspect]
     Active Substance: LORAZEPAM
     Dosage: 1.0MG UNKNOWN
     Route: 065
     Dates: start: 20201111
  10. TEMESTA [LORAZEPAM] [Suspect]
     Active Substance: LORAZEPAM
     Dosage: 2.5MG UNKNOWN
     Route: 065
     Dates: start: 20201104
  11. TEMESTA [LORAZEPAM] [Suspect]
     Active Substance: LORAZEPAM
     Dosage: 1.5MG UNKNOWN
     Route: 065
     Dates: start: 20201204
  12. SEROQUEL XR [Suspect]
     Active Substance: QUETIAPINE FUMARATE
     Indication: ACUTE PSYCHOSIS
     Dosage: 100.0MG UNKNOWN
     Route: 048
     Dates: start: 20201102, end: 20201122
  13. TEMESTA [LORAZEPAM] [Suspect]
     Active Substance: LORAZEPAM
     Dosage: 1.25MG UNKNOWN
     Route: 065
     Dates: start: 20201106
  14. TEMESTA [LORAZEPAM] [Suspect]
     Active Substance: LORAZEPAM
     Dosage: 2.0MG UNKNOWN
     Route: 065
     Dates: start: 20201202
  15. LAMOTRIGIN [Suspect]
     Active Substance: LAMOTRIGINE
     Indication: ACUTE PSYCHOSIS
     Dosage: 25.0MG UNKNOWN
     Route: 065
     Dates: start: 20201105
  16. MIRTAZAPINE. [Suspect]
     Active Substance: MIRTAZAPINE
     Indication: ACUTE PSYCHOSIS
     Dosage: 30.0MG UNKNOWN
     Route: 065
  17. TEMESTA [LORAZEPAM] [Suspect]
     Active Substance: LORAZEPAM
     Dosage: 1.0MG UNKNOWN
     Route: 065
     Dates: start: 20201215
  18. RISPERDAL [Suspect]
     Active Substance: RISPERIDONE
     Dosage: 4.0MG UNKNOWN
     Route: 065
     Dates: start: 20201107, end: 20201112

REACTIONS (1)
  - Extrasystoles [Recovered/Resolved]

NARRATIVE: CASE EVENT DATE: 20201112
